FAERS Safety Report 23851284 (Version 2)
Quarter: 2024Q2

REPORT INFORMATION
  Report Type: Spontaneous
  Country: JP (occurrence: JP)
  Receive Date: 20240514
  Receipt Date: 20240607
  Transmission Date: 20240715
  Serious: Yes (Other)
  Sender: FDA-Public Use
  Company Number: JP-002147023-NVSJ2024JP005520

PATIENT
  Age: 75 Year
  Sex: Female

DRUGS (1)
  1. BEOVU [Suspect]
     Active Substance: BROLUCIZUMAB-DBLL
     Indication: Diabetic retinal oedema
     Dosage: 6 MG
     Route: 031
     Dates: start: 20240111, end: 20240111

REACTIONS (7)
  - Uveitis [Recovered/Resolved]
  - Keratic precipitates [Recovered/Resolved]
  - Iritis [Recovered/Resolved]
  - Vitreous floaters [Unknown]
  - Visual impairment [Unknown]
  - Vitreous opacities [Recovered/Resolved]
  - Eye allergy [Unknown]

NARRATIVE: CASE EVENT DATE: 20240215
